FAERS Safety Report 9749763 (Version 1)
Quarter: 2013Q4

REPORT INFORMATION
  Report Type: Spontaneous
  Country: US (occurrence: US)
  Receive Date: 20131212
  Receipt Date: 20131212
  Transmission Date: 20140711
  Serious: No
  Sender: FDA-Public Use
  Company Number: US-TEVA-394580USA

PATIENT
  Age: 25 Year
  Sex: Female
  Weight: 90.8 kg

DRUGS (2)
  1. PARAGARD 380A [Suspect]
     Indication: CONTRACEPTION
     Route: 015
     Dates: start: 20130308
  2. GABAPENTIN [Concomitant]
     Indication: ANXIETY
     Dosage: 800 MILLIGRAM DAILY;
     Route: 048

REACTIONS (4)
  - Metrorrhagia [Recovered/Resolved]
  - Uterine spasm [Not Recovered/Not Resolved]
  - Abdominal distension [Not Recovered/Not Resolved]
  - Urticaria [Not Recovered/Not Resolved]
